FAERS Safety Report 11570391 (Version 8)
Quarter: 2020Q3

REPORT INFORMATION
  Report Type: Report from Study
  Country: JP (occurrence: JP)
  Receive Date: 20150929
  Receipt Date: 20200901
  Transmission Date: 20201102
  Serious: Yes (Hospitalization, Other)
  Sender: FDA-Public Use
  Company Number: JP-INCYTE CORPORATION-2015IN004663

PATIENT

DRUGS (8)
  1. JAKAVI [Suspect]
     Active Substance: RUXOLITINIB
     Dosage: 5 MG, QD
     Route: 048
     Dates: start: 20150209, end: 20170312
  2. JAKAVI [Suspect]
     Active Substance: RUXOLITINIB
     Dosage: 5 MG, BID
     Route: 048
     Dates: start: 20170313, end: 20170610
  3. IRRADIATED RED CELLS CONCENTRATES?LEUKOCYTES [Concomitant]
     Indication: PRIMARY MYELOFIBROSIS
     Dosage: 1 DF, UNK
     Route: 065
  4. CELECOX [Concomitant]
     Active Substance: CELECOXIB
     Indication: BACK PAIN
     Dosage: 200 MG, UNK
     Route: 048
     Dates: start: 20170418
  5. JAKAVI [Suspect]
     Active Substance: RUXOLITINIB
     Indication: PRIMARY MYELOFIBROSIS
     Dosage: 5 MG, QD
     Route: 048
     Dates: start: 20140922, end: 20141019
  6. JAKAVI [Suspect]
     Active Substance: RUXOLITINIB
     Dosage: 5 MG, BID
     Route: 048
     Dates: start: 20141020, end: 20150201
  7. METENOLONE ACETATE [Concomitant]
     Active Substance: METHENOLONE ACETATE
     Indication: PRIMARY MYELOFIBROSIS
     Dosage: 15 MG, UNK
     Route: 048
     Dates: start: 20161016, end: 20170515
  8. JAKAVI [Suspect]
     Active Substance: RUXOLITINIB
     Dosage: 5 MG, BID
     Route: 048
     Dates: start: 20170711

REACTIONS (3)
  - Myelofibrosis [Recovered/Resolved]
  - Gastric ulcer haemorrhage [Recovered/Resolved]
  - White blood cell count increased [Unknown]

NARRATIVE: CASE EVENT DATE: 20170313
